FAERS Safety Report 10400700 (Version 3)
Quarter: 2014Q4

REPORT INFORMATION
  Report Type: Spontaneous
  Country: US (occurrence: US)
  Receive Date: 20140821
  Receipt Date: 20141022
  Transmission Date: 20150528
  Serious: Yes (Other)
  Sender: FDA-Public Use
  Company Number: US-GILEAD-2014-0112825

PATIENT
  Age: 67 Year
  Sex: Female

DRUGS (2)
  1. CORTISONE [Suspect]
     Active Substance: CORTISONE\HYDROCORTISONE
     Indication: PRODUCT USED FOR UNKNOWN INDICATION
     Dosage: 2 DF, TOTAL
     Route: 065
     Dates: start: 201407
  2. LETAIRIS [Suspect]
     Active Substance: AMBRISENTAN
     Indication: PULMONARY ARTERIAL HYPERTENSION
     Dosage: 10 MG, QD
     Route: 065
     Dates: start: 20130702

REACTIONS (7)
  - Hypotension [Unknown]
  - Dizziness [Unknown]
  - Adrenal insufficiency [Unknown]
  - Steroid therapy [Unknown]
  - Syncope [Unknown]
  - Dyspnoea [Unknown]
  - Blood cortisol decreased [Unknown]

NARRATIVE: CASE EVENT DATE: 201407
